FAERS Safety Report 18635348 (Version 1)
Quarter: 2020Q4

REPORT INFORMATION
  Report Type: Spontaneous
  Country: US (occurrence: US)
  Receive Date: 20201218
  Receipt Date: 20201218
  Transmission Date: 20210114
  Serious: No
  Sender: FDA-Public Use
  Company Number: US-GALDERMA-US2020030566

PATIENT
  Age: 39 Year
  Sex: Female

DRUGS (6)
  1. DIFFERIN GEL [Suspect]
     Active Substance: ADAPALENE
     Dosage: 0.1%
     Route: 061
     Dates: start: 20200601
  2. DIFFERIN GEL [Suspect]
     Active Substance: ADAPALENE
     Indication: ACNE CYSTIC
     Dosage: 0.1%
     Route: 061
     Dates: start: 20190101, end: 20200530
  3. DOXYCYCLINE MONOHYDRATE [Concomitant]
     Active Substance: DOXYCYCLINE
     Indication: ACNE CYSTIC
     Dosage: 100 MG
     Route: 048
     Dates: start: 20200601
  4. BIRTH CONTROL PILL [Concomitant]
     Active Substance: UNSPECIFIED INGREDIENT
     Indication: ACNE CYSTIC
     Route: 048
     Dates: start: 20200601
  5. DIFFERIN DAILY DEEP CLEANSER WITH BPO [Suspect]
     Active Substance: BENZOYL PEROXIDE
     Indication: ACNE CYSTIC
     Route: 061
     Dates: start: 20190101, end: 20200101
  6. KLARON SODIUM SULFACETAMIDE LOTION [Concomitant]
     Indication: ACNE CYSTIC
     Route: 065
     Dates: start: 20200601

REACTIONS (6)
  - Drug ineffective [Unknown]
  - Off label use [Recovered/Resolved]
  - Rash papular [Not Recovered/Not Resolved]
  - Rash pruritic [Not Recovered/Not Resolved]
  - Pain of skin [Not Recovered/Not Resolved]
  - Intentional underdose [Recovered/Resolved]

NARRATIVE: CASE EVENT DATE: 202003
